FAERS Safety Report 9294727 (Version 1)
Quarter: 2013Q1

REPORT INFORMATION
  Report Type: Spontaneous
  Country: US (occurrence: None)
  Receive Date: 20121227
  Receipt Date: 20121227
  Transmission Date: 20140127
  Serious: Yes (Hospitalization, Other)
  Sender: FDA-Public Use
  Company Number: PHEH2011US012713

PATIENT
  Age: 23 Year
  Sex: Male

DRUGS (2)
  1. MYFORTIC (MYCOPHENOLIC ACID) TABLET [Suspect]
     Indication: PROPHYLAXIS AGAINST TRANSPLANT REJECTION
     Route: 048
     Dates: start: 20080816, end: 20091122
  2. PREDNISONE (NGX) (PREDNISONE) UNKNOWN [Suspect]
     Indication: PROPHYLAXIS AGAINST TRANSPLANT REJECTION
     Dates: start: 20080819

REACTIONS (3)
  - Influenza [None]
  - Hypertension [None]
  - Pyrexia [None]
